FAERS Safety Report 6328191-6 (Version None)
Quarter: 2009Q3

REPORT INFORMATION
  Report Type: 
  Country: None (occurrence: None)
  Receive Date: 20090825
  Receipt Date: 20090108
  Transmission Date: 20100115
  Serious: No
  Sender: FDA-Public Use
  Company Number: US-ABBOTT-09P-163-0496546-00

PATIENT
  Sex: Female

DRUGS (1)
  1. SYNTHROID [Suspect]
     Indication: HYPOTHYROIDISM
     Dosage: VARYING DOSES
     Route: 048

REACTIONS (3)
  - CHEST PAIN [None]
  - COELIAC DISEASE [None]
  - HIATUS HERNIA [None]
